FAERS Safety Report 24381779 (Version 1)
Quarter: 2024Q4

REPORT INFORMATION
  Report Type: Report from Study
  Country: CH (occurrence: CH)
  Receive Date: 20241001
  Receipt Date: 20241001
  Transmission Date: 20250115
  Serious: Yes (Hospitalization)
  Sender: ABBVIE
  Company Number: CH-ABBVIE-5941969

PATIENT
  Age: 75 Year
  Sex: Male

DRUGS (2)
  1. CARBIDOPA\LEVODOPA [Suspect]
     Active Substance: CARBIDOPA\LEVODOPA
     Indication: Parkinson^s disease
     Dosage: MD: 4.0ML, CRD: 4.5 ML/H, ED: 1.2 ML, CRN: 3.9MG/ML
     Route: 050
     Dates: start: 20240911
  2. CARBIDOPA\LEVODOPA [Suspect]
     Active Substance: CARBIDOPA\LEVODOPA
     Route: 050
     Dates: start: 20220502

REACTIONS (9)
  - Device leakage [Not Recovered/Not Resolved]
  - Hallucination [Not Recovered/Not Resolved]
  - Abnormal behaviour [Not Recovered/Not Resolved]
  - Device leakage [Not Recovered/Not Resolved]
  - Diarrhoea [Not Recovered/Not Resolved]
  - Stoma site inflammation [Not Recovered/Not Resolved]
  - Bladder pain [Not Recovered/Not Resolved]
  - Renal pain [Recovered/Resolved]
  - Stoma site infection [Not Recovered/Not Resolved]

NARRATIVE: CASE EVENT DATE: 20240901
